FAERS Safety Report 7324722-8 (Version None)
Quarter: 2011Q1

REPORT INFORMATION
  Report Type: 
  Country: None (occurrence: None)
  Receive Date: 20110214
  Receipt Date: 20110121
  Transmission Date: 20110831
  Serious: Yes (Other)
  Sender: FDA-Public Use
  Company Number: 2011PROUSA00164

PATIENT
  Age: 56 Year
  Sex: Male

DRUGS (2)
  1. PROVENGE [Suspect]
     Indication: PROSTATE CANCER METASTATIC
     Dosage: (50 ML, SINGLE INTRAVENOUS) (250 ML, SINGLE INTRAVENOUS)
     Route: 042
     Dates: start: 20101209, end: 20101209
  2. PROVENGE [Suspect]
     Indication: PROSTATE CANCER METASTATIC
     Dosage: (50 ML, SINGLE INTRAVENOUS) (250 ML, SINGLE INTRAVENOUS)
     Route: 042
     Dates: start: 20101220, end: 20101220

REACTIONS (1)
  - DEEP VEIN THROMBOSIS [None]
